FAERS Safety Report 7653785-5 (Version None)
Quarter: 2011Q3

REPORT INFORMATION
  Report Type: 
  Country: None (occurrence: None)
  Receive Date: 20110803
  Receipt Date: 20110729
  Transmission Date: 20111222
  Serious: Yes (Hospitalization)
  Sender: FDA-Public Use
  Company Number: FR-VIIV HEALTHCARE LIMITED-B0735950A

PATIENT
  Sex: Male

DRUGS (19)
  1. UVEDOSE [Concomitant]
     Dosage: 1UNIT EVERY TWO WEEKS
     Route: 065
  2. ABACAVIR SULFATE AND LAMIVUDINE [Suspect]
     Indication: HIV INFECTION
     Dosage: 600MG PER DAY
     Route: 048
     Dates: start: 20110304, end: 20110407
  3. BACTRIM [Suspect]
     Indication: PRODUCT USED FOR UNKNOWN INDICATION
     Dosage: 1UNIT PER DAY
     Route: 048
     Dates: start: 20110201, end: 20110407
  4. FOLINORAL [Concomitant]
     Dosage: 25MG PER DAY
     Route: 065
     Dates: start: 20110202, end: 20110503
  5. NEXIUM [Concomitant]
     Dosage: 20MG PER DAY
     Route: 065
     Dates: start: 20110206
  6. SIMVASTATIN [Concomitant]
     Dosage: 20MG PER DAY
     Route: 065
     Dates: start: 20110208
  7. NORVIR [Concomitant]
     Dosage: 100MG PER DAY
     Route: 065
     Dates: start: 20110304
  8. NICARDIPINE HCL [Concomitant]
     Dosage: 50MG TWICE PER DAY
     Route: 065
     Dates: start: 20110202, end: 20110517
  9. RAMIPRIL [Concomitant]
     Dosage: 1.25MG PER DAY
     Route: 065
     Dates: start: 20110203
  10. FERROUS SULFATE TAB [Concomitant]
     Dosage: 2UNIT PER DAY
     Route: 065
     Dates: start: 20110209
  11. PRAZIQUANTEL [Suspect]
     Indication: PRODUCT USED FOR UNKNOWN INDICATION
     Dosage: 4UNIT SINGLE DOSE
     Route: 065
     Dates: start: 20110421, end: 20110421
  12. LOVENOX [Concomitant]
     Dosage: 4000IU SINGLE DOSE
     Route: 058
     Dates: start: 20110201, end: 20110620
  13. ASPIRIN [Concomitant]
     Dosage: 75MG PER DAY
     Route: 065
     Dates: start: 20110218, end: 20110523
  14. ZIAGEN [Suspect]
     Indication: HIV INFECTION
     Dosage: 300MG TWICE PER DAY
     Route: 048
     Dates: start: 20110408, end: 20110412
  15. PREZISTA [Concomitant]
     Dosage: 400MG TWICE PER DAY
     Route: 065
     Dates: start: 20110304
  16. VITAMIN B [Concomitant]
     Dosage: 1UNIT TWICE PER DAY
     Route: 065
  17. FOLIC ACID [Suspect]
     Indication: PRODUCT USED FOR UNKNOWN INDICATION
     Dosage: 5MG THREE TIMES PER DAY
     Route: 048
     Dates: start: 20110307, end: 20110429
  18. PHLOROGLUCINOL [Concomitant]
     Dosage: 160MG THREE TIMES PER DAY
     Route: 065
     Dates: start: 20110209, end: 20110407
  19. ACETAMINOPHEN [Concomitant]
     Route: 065
     Dates: start: 20110201

REACTIONS (1)
  - EOSINOPHILIA [None]
